FAERS Safety Report 21368361 (Version 3)
Quarter: 2023Q1

REPORT INFORMATION
  Report Type: Spontaneous
  Country: US (occurrence: US)
  Receive Date: 20220923
  Receipt Date: 20230208
  Transmission Date: 20230418
  Serious: Yes (Hospitalization)
  Sender: FDA-Public Use
  Company Number: US-UNITED THERAPEUTICS-UNT-2022-019681

PATIENT
  Sex: Female
  Weight: 120.18 kg

DRUGS (10)
  1. ORENITRAM [Suspect]
     Active Substance: TREPROSTINIL
     Indication: Pulmonary arterial hypertension
     Dosage: UNK
     Route: 048
     Dates: start: 20220307
  2. ORENITRAM [Suspect]
     Active Substance: TREPROSTINIL
     Dosage: 1 MG, Q8H
     Route: 048
     Dates: end: 2022
  3. ORENITRAM [Suspect]
     Active Substance: TREPROSTINIL
     Dosage: 2.75 MG, UNK
     Route: 048
     Dates: start: 20220911, end: 202209
  4. ORENITRAM [Suspect]
     Active Substance: TREPROSTINIL
     Dosage: 2.5 MG, Q8H
     Route: 048
     Dates: start: 202209
  5. ORENITRAM [Suspect]
     Active Substance: TREPROSTINIL
     Dosage: 3 MG, TID
     Route: 048
     Dates: start: 202209
  6. ORENITRAM [Suspect]
     Active Substance: TREPROSTINIL
     Indication: Pulmonary arterial hypertension
     Dosage: UNK
     Route: 048
  7. ORENITRAM [Suspect]
     Active Substance: TREPROSTINIL
     Indication: Pulmonary arterial hypertension
     Dosage: UNK
     Route: 048
  8. ORENITRAM [Suspect]
     Active Substance: TREPROSTINIL
     Indication: Pulmonary arterial hypertension
     Dosage: UNK
     Route: 048
  9. SILDENAFIL CITRATE [Concomitant]
     Active Substance: SILDENAFIL CITRATE
     Indication: Product used for unknown indication
     Dosage: UNK
     Route: 065
  10. XARELTO [Concomitant]
     Active Substance: RIVAROXABAN
     Indication: Product used for unknown indication
     Dosage: UNK
     Route: 065

REACTIONS (11)
  - Chest pain [Recovering/Resolving]
  - Chest discomfort [Recovering/Resolving]
  - Dyspnoea [Unknown]
  - Headache [Recovering/Resolving]
  - Electrocardiogram abnormal [Unknown]
  - Cardiac stress test abnormal [Unknown]
  - Heart rate increased [Recovering/Resolving]
  - Therapy non-responder [Unknown]
  - Blood pressure fluctuation [Recovering/Resolving]
  - Head discomfort [Recovering/Resolving]
  - Feeling abnormal [Recovering/Resolving]

NARRATIVE: CASE EVENT DATE: 20220101
